FAERS Safety Report 4791158-3 (Version None)
Quarter: 2005Q4

REPORT INFORMATION
  Report Type: 
  Country: None (occurrence: None)
  Receive Date: 20051005
  Receipt Date: 20050921
  Transmission Date: 20060501
  Serious: Yes (Life-Threatening)
  Sender: FDA-Public Use
  Company Number: 02100-JPN-05-0463

PATIENT
  Age: 83 Year
  Sex: Male

DRUGS (13)
  1. CILOSTAZOL [Suspect]
     Dosage: 200 MG ORAL
     Route: 048
  2. ASPIRIN [Suspect]
     Dosage: 100 MG ORAL
     Route: 048
  3. LIMAPROST [Suspect]
     Dosage: 20 MCG ORAL
     Route: 048
  4. VALSARTAN [Concomitant]
  5. FUROSEMIDE [Concomitant]
  6. ISOSORBIDE MONONITRATE [Concomitant]
  7. TRIAZOLAM [Concomitant]
  8. FAMOTIDINE [Concomitant]
  9. WARFARIN [Concomitant]
  10. MEXILETIN HYDROCHLORIDE [Concomitant]
  11. NATEGLINIDE [Concomitant]
  12. SERRAPEPTASE [Concomitant]
  13. CEFCAPENE PIVOXIL HYDROCHLORIDE [Concomitant]

REACTIONS (8)
  - BLEEDING TIME PROLONGED [None]
  - BRAIN CONTUSION [None]
  - EXTRADURAL HAEMATOMA [None]
  - FALL [None]
  - HEAD INJURY [None]
  - LOSS OF CONSCIOUSNESS [None]
  - POST PROCEDURAL HAEMATOMA [None]
  - SUBDURAL HAEMATOMA [None]
